FAERS Safety Report 5929536-9 (Version None)
Quarter: 2008Q4

REPORT INFORMATION
  Report Type: 
  Country: None (occurrence: None)
  Receive Date: 20081024
  Receipt Date: 20081016
  Transmission Date: 20090506
  Serious: Yes (Hospitalization)
  Sender: FDA-Public Use
  Company Number: B0541963A

PATIENT
  Age: 79 Year
  Sex: Female

DRUGS (6)
  1. DEROXAT [Suspect]
     Indication: DEPRESSION
     Dosage: 10MG PER DAY
     Route: 048
     Dates: start: 20080912, end: 20080919
  2. VALSARTAN AND HYDROCHLOROTHIAZIDE [Suspect]
     Route: 048
  3. ZOLPIDEM [Concomitant]
     Route: 065
  4. ACTONEL [Concomitant]
     Route: 065
  5. LIPUR [Concomitant]
     Route: 065
  6. FIXICAL [Concomitant]
     Route: 065

REACTIONS (5)
  - ASTHENIA [None]
  - CONFUSIONAL STATE [None]
  - DRUG INTERACTION [None]
  - HYPOKALAEMIA [None]
  - HYPONATRAEMIA [None]
